FAERS Safety Report 21950666 (Version 2)
Quarter: 2023Q1

REPORT INFORMATION
  Report Type: Spontaneous
  Country: DE (occurrence: DE)
  Receive Date: 20230203
  Receipt Date: 20230220
  Transmission Date: 20230418
  Serious: Yes (Other)
  Sender: FDA-Public Use
  Company Number: DE-TEVA-2023-DE-2851701

PATIENT
  Sex: Male

DRUGS (2)
  1. PACLITAXEL [Suspect]
     Active Substance: PACLITAXEL
     Indication: Hormone-refractory prostate cancer
     Dosage: SINGLE DOSE ON DAY 1
     Route: 065
  2. IFOSFAMIDE [Suspect]
     Active Substance: IFOSFAMIDE
     Indication: Hormone-refractory prostate cancer
     Dosage: DIVIDED OVER 2 TO 3 DAYS
     Route: 065

REACTIONS (1)
  - Drug-induced liver injury [Unknown]
